FAERS Safety Report 4682148-X (Version None)
Quarter: 2005Q2

REPORT INFORMATION
  Report Type: 
  Country: None (occurrence: None)
  Receive Date: 20050602
  Receipt Date: 20050524
  Transmission Date: 20051028
  Serious: Yes (Hospitalization, Other)
  Sender: FDA-Public Use
  Company Number: 2005-05-0558

PATIENT
  Age: 48 Year
  Sex: Female
  Weight: 72 kg

DRUGS (2)
  1. PEG-INTRON [Suspect]
     Indication: HEPATITIS C
     Dosage: 120 MCG QW SUBCUTANEUOS
     Route: 058
     Dates: start: 20041007
  2. REBETOL [Suspect]
     Indication: HEPATITIS C
     Dosage: 1000 MCG QD ORAL
     Route: 048
     Dates: start: 20041007

REACTIONS (2)
  - HYPOTHYROIDISM [None]
  - TUBERCULOSIS [None]
